FAERS Safety Report 4420655-5 (Version None)
Quarter: 2004Q3

REPORT INFORMATION
  Report Type: 
  Country: None (occurrence: None)
  Receive Date: 20040809
  Receipt Date: 20040419
  Transmission Date: 20050211
  Serious: No
  Sender: FDA-Public Use
  Company Number: US-GLAXOSMITHKLINE-A0507557A

PATIENT
  Age: 25 Year
  Sex: Female
  Weight: 68.2 kg

DRUGS (3)
  1. PAXIL [Suspect]
     Indication: DEPRESSION
     Route: 048
     Dates: start: 20040301, end: 20040601
  2. FLONASE [Concomitant]
     Route: 045
     Dates: start: 20010101
  3. ORAL CONTRACEPTIVE [Concomitant]
     Route: 048
     Dates: start: 19980101

REACTIONS (2)
  - DIZZINESS [None]
  - ELECTRIC SHOCK [None]
